FAERS Safety Report 24980658 (Version 3)
Quarter: 2025Q3

REPORT INFORMATION
  Report Type: Spontaneous
  Country: US (occurrence: US)
  Receive Date: 20250218
  Receipt Date: 20250806
  Transmission Date: 20251021
  Serious: Yes (Death, Life-Threatening, Hospitalization)
  Sender: PFIZER
  Company Number: US-MLMSERVICE-20250210-PI396104-00306-4

PATIENT
  Age: 70 Year
  Sex: Male

DRUGS (8)
  1. RAPAMUNE [Suspect]
     Active Substance: SIROLIMUS
     Indication: Immunosuppressant drug therapy
  2. METHYLPREDNISOLONE SODIUM SUCCINATE [Suspect]
     Active Substance: METHYLPREDNISOLONE SODIUM SUCCINATE
     Indication: Transplant rejection
  3. PROGRAF [Suspect]
     Active Substance: TACROLIMUS
     Indication: Immunosuppressant drug therapy
  4. CELLCEPT [Suspect]
     Active Substance: MYCOPHENOLATE MOFETIL
     Indication: Immunosuppressant drug therapy
  5. IMURAN [Suspect]
     Active Substance: AZATHIOPRINE
     Indication: Immunosuppressant drug therapy
  6. NULOJIX [Suspect]
     Active Substance: BELATACEPT
     Indication: Immunosuppressant drug therapy
  7. NULOJIX [Suspect]
     Active Substance: BELATACEPT
     Dosage: 5 MG/KG, MONTHLY
  8. PREDNISONE [Suspect]
     Active Substance: PREDNISONE
     Indication: Immunosuppressant drug therapy
     Dosage: 5 MG, 1X/DAY

REACTIONS (3)
  - Central nervous system lymphoma [Fatal]
  - Diffuse large B-cell lymphoma [Fatal]
  - Post transplant lymphoproliferative disorder [Fatal]
